FAERS Safety Report 25816652 (Version 1)
Quarter: 2025Q3

REPORT INFORMATION
  Report Type: Spontaneous
  Country: EU (occurrence: EU)
  Receive Date: 20250918
  Receipt Date: 20250918
  Transmission Date: 20251021
  Serious: Yes (Other)
  Sender: SAMSUNG BIOEPIS
  Company Number: EU-SAMSUNG BIOEPIS-SB-2025-31303

PATIENT

DRUGS (2)
  1. ADALIMUMAB [Suspect]
     Active Substance: ADALIMUMAB
     Indication: Cystoid macular oedema
     Route: 058
  2. CERTOLIZUMAB [Suspect]
     Active Substance: CERTOLIZUMAB
     Indication: Cystoid macular oedema
     Dosage: 400 MG AT BASELINE AND WEEKS 2 AND 4, AND THEN CONTINUED AS 200 MG INJECTIONS EVERY OTHER WEEK.

REACTIONS (4)
  - Bacteraemia [Unknown]
  - Pyelonephritis [Unknown]
  - Drug effective for unapproved indication [Unknown]
  - Off label use [Unknown]
